FAERS Safety Report 16430462 (Version 1)
Quarter: 2019Q2

REPORT INFORMATION
  Report Type: Spontaneous
  Country: JP (occurrence: JP)
  Receive Date: 20190614
  Receipt Date: 20190614
  Transmission Date: 20190711
  Serious: Yes (Other)
  Sender: FDA-Public Use
  Company Number: JP-TEVA-2019-JP-1064157

PATIENT
  Age: 69 Year
  Sex: Female

DRUGS (3)
  1. PACLITAXEL. [Suspect]
     Active Substance: PACLITAXEL
     Indication: SEBACEOUS CARCINOMA
     Dosage: TOTAL OF 7 CYCLES OF CHEMOTHERAPY WAS ADMINISTERED, AT 3-WEEKS PER CYCLE.
     Route: 065
  2. CARBOPLATIN. [Suspect]
     Active Substance: CARBOPLATIN
     Indication: SEBACEOUS CARCINOMA
     Dosage: AREA UNDER CURVE 5; TOTAL OF 7 CYCLES OF CHEMOTHERAPY WAS ADMINISTERED, AT 3-WEEKS PER CYCLE.
     Route: 065
  3. DOCETAXEL. [Suspect]
     Active Substance: DOCETAXEL
     Indication: SEBACEOUS CARCINOMA
     Dosage: TOTAL OF 6 CYCLES WAS ADMINISTERED, AT 3-WEEKS PER CYCLE.
     Route: 065

REACTIONS (3)
  - Neuropathy peripheral [Unknown]
  - Neutropenia [Unknown]
  - Febrile neutropenia [Unknown]
